FAERS Safety Report 13056560 (Version 1)
Quarter: 2016Q4

REPORT INFORMATION
  Report Type: Spontaneous
  Country: GB (occurrence: GB)
  Receive Date: 20161222
  Receipt Date: 20161222
  Transmission Date: 20170207
  Serious: Yes (Other)
  Sender: FDA-Public Use
  Company Number: GB-BAUSCH-BL-2016-031998

PATIENT
  Age: 78 Year
  Sex: Female

DRUGS (6)
  1. ATRACURIUM [Suspect]
     Active Substance: ATRACURIUM
     Indication: PERIOPERATIVE ANALGESIA
     Route: 065
     Dates: start: 201606
  2. METARAMINOL [Suspect]
     Active Substance: METARAMINOL
     Indication: PRODUCT USED FOR UNKNOWN INDICATION
     Route: 065
     Dates: start: 201606
  3. REMIFENTANIL [Suspect]
     Active Substance: REMIFENTANIL
     Indication: PERIOPERATIVE ANALGESIA
     Route: 065
     Dates: start: 201606
  4. TEICOPLANIN [Suspect]
     Active Substance: TEICOPLANIN
     Indication: ANTIBIOTIC PROPHYLAXIS
     Route: 065
     Dates: start: 201606
  5. METRONIDAZOLE. [Suspect]
     Active Substance: METRONIDAZOLE
     Indication: ANTIBIOTIC PROPHYLAXIS
     Route: 065
     Dates: start: 201606
  6. PROPOFOL. [Suspect]
     Active Substance: PROPOFOL
     Indication: PERIOPERATIVE ANALGESIA
     Route: 065
     Dates: start: 201606

REACTIONS (4)
  - Generalised erythema [Unknown]
  - Flushing [Unknown]
  - Blood pressure immeasurable [Unknown]
  - Blood pressure decreased [Unknown]

NARRATIVE: CASE EVENT DATE: 20160615
